FAERS Safety Report 8378592-X (Version None)
Quarter: 2012Q2

REPORT INFORMATION
  Report Type: 
  Country: None (occurrence: None)
  Receive Date: 20120522
  Receipt Date: 20111007
  Transmission Date: 20120825
  Serious: No
  Sender: FDA-Public Use
  Company Number: US-ASTRAZENECA-2011SE60467

PATIENT
  Sex: Female

DRUGS (2)
  1. PRILOSEC [Suspect]
     Route: 048
  2. PROZAC [Concomitant]
     Indication: DEPRESSION

REACTIONS (5)
  - VOMITING [None]
  - NAUSEA [None]
  - BURNING SENSATION [None]
  - OROPHARYNGEAL DISCOMFORT [None]
  - ABDOMINAL PAIN UPPER [None]
